FAERS Safety Report 24455202 (Version 2)
Quarter: 2024Q4

REPORT INFORMATION
  Report Type: Spontaneous
  Country: IT (occurrence: IT)
  Receive Date: 20241017
  Receipt Date: 20241018
  Transmission Date: 20250115
  Serious: No
  Sender: ROCHE
  Company Number: None

PATIENT
  Age: 54 Year
  Sex: Female

DRUGS (1)
  1. RITUXIMAB [Suspect]
     Active Substance: RITUXIMAB
     Indication: SLE arthritis
     Dosage: RITUXIMAB 1000 MG 1 INFUSION AT TIME 0-15 EVERY 6 MONTHS
     Route: 065
     Dates: start: 20201105, end: 20230810

REACTIONS (1)
  - Tongue pruritus [Recovered/Resolved]

NARRATIVE: CASE EVENT DATE: 20230810
